FAERS Safety Report 10159091 (Version 2)
Quarter: 2014Q2

REPORT INFORMATION
  Report Type: Report from Study
  Country: BR (occurrence: BR)
  Receive Date: 20140508
  Receipt Date: 20140508
  Transmission Date: 20141212
  Serious: Yes (Other)
  Sender: FDA-Public Use
  Company Number: BR-ROCHE-1102037

PATIENT
  Age: 33 Year
  Sex: Female
  Weight: 47 kg

DRUGS (7)
  1. MABTHERA [Suspect]
     Indication: RHEUMATOID ARTHRITIS
     Dosage: ON 15/APR/2013, LATEST INFUSION WAS CARRIED OUT
     Route: 042
     Dates: end: 20120806
  2. MABTHERA [Suspect]
     Indication: SJOGREN^S SYNDROME
  3. OMEPRAZOLE [Concomitant]
  4. REUQUINOL [Concomitant]
     Route: 065
  5. PAROXETINE [Concomitant]
     Route: 065
  6. RISPERIDONE [Concomitant]
     Route: 065
  7. PREGABALIN [Concomitant]
     Route: 065

REACTIONS (3)
  - Headache [Recovered/Resolved]
  - Flatulence [Recovered/Resolved]
  - Skin test positive [Not Recovered/Not Resolved]
